FAERS Safety Report 19370049 (Version 1)
Quarter: 2021Q2

REPORT INFORMATION
  Report Type: Spontaneous
  Country: US (occurrence: US)
  Receive Date: 20210603
  Receipt Date: 20210603
  Transmission Date: 20210717
  Serious: Yes (Other)
  Sender: FDA-Public Use
  Company Number: US-TEVA-2021-US-1918830

PATIENT

DRUGS (1)
  1. LAMOTRIGINE ACTAVIS/TEVA [Suspect]
     Active Substance: LAMOTRIGINE
     Dosage: 600 MILLIGRAM DAILY; 300MG IN THE MORNING AND 300MG AT NIGHT
     Route: 065

REACTIONS (3)
  - Drug level decreased [Unknown]
  - Product quality issue [Unknown]
  - Seizure [Unknown]

NARRATIVE: CASE EVENT DATE: 2021
